FAERS Safety Report 5505219-4 (Version None)
Quarter: 2007Q4

REPORT INFORMATION
  Report Type: 
  Country: None (occurrence: None)
  Receive Date: 20071102
  Receipt Date: 20071022
  Transmission Date: 20080405
  Serious: Yes (Death)
  Sender: FDA-Public Use
  Company Number: US-GENENTECH-249274

PATIENT
  Sex: Female

DRUGS (7)
  1. BEVACIZUMAB [Suspect]
     Indication: GLIOBLASTOMA MULTIFORME
     Dosage: 15 MG/KG, Q3W
     Route: 042
     Dates: start: 20070622
  2. VASOTEC [Concomitant]
     Indication: HYPERTENSION
     Dosage: 2.5 MG, QD
     Dates: start: 20070727
  3. RITALIN [Concomitant]
     Indication: FATIGUE
     Dosage: 15 MG, SINGLE
     Dates: start: 20070823
  4. DECADRON [Concomitant]
     Indication: OEDEMA
     Dosage: 2 MG, TID
     Dates: start: 20070823
  5. BACTRIM [Concomitant]
     Indication: INFECTION
     Dosage: 1 TABLET, 3/WEEK
     Dates: start: 20070823
  6. FLUCONAZOLE [Concomitant]
     Indication: INFECTION
     Dosage: 100 MG, QD
     Dates: start: 20070823
  7. ZANTAC [Concomitant]
     Indication: GASTROOESOPHAGEAL REFLUX DISEASE
     Dosage: 150 MG, BID
     Dates: start: 20070621

REACTIONS (1)
  - DISEASE PROGRESSION [None]
